FAERS Safety Report 9210642 (Version 1)
Quarter: 2013Q2

REPORT INFORMATION
  Report Type: Spontaneous
  Country: US (occurrence: US)
  Receive Date: 20130404
  Receipt Date: 20130404
  Transmission Date: 20140414
  Serious: No
  Sender: FDA-Public Use
  Company Number: US-PFIZER INC-2013103098

PATIENT
  Age: 58 Year
  Sex: Female
  Weight: 68 kg

DRUGS (2)
  1. ESTRING [Suspect]
     Indication: MENOPAUSAL SYMPTOMS
     Dosage: UNK
     Route: 067
     Dates: start: 2012, end: 20130326
  2. METOPROLOL [Concomitant]
     Indication: HYPERTENSION
     Dosage: UNK

REACTIONS (4)
  - Thyroid function test abnormal [Unknown]
  - Blood glucose abnormal [Unknown]
  - Hepatic enzyme increased [Unknown]
  - Fungal infection [Not Recovered/Not Resolved]
